FAERS Safety Report 25525590 (Version 1)
Quarter: 2025Q3

REPORT INFORMATION
  Report Type: Spontaneous
  Country: US (occurrence: US)
  Receive Date: 20250707
  Receipt Date: 20250707
  Transmission Date: 20251021
  Serious: No
  Sender: BAYER HEALTHCARE PHARMACEUTICALS INC.
  Company Number: US-BAYER-2025A086425

PATIENT

DRUGS (2)
  1. GADAVIST [Suspect]
     Active Substance: GADOBUTROL
     Indication: Magnetic resonance imaging
     Dates: start: 20250531, end: 20250531
  2. GADOPENTETATE DIMEGLUMINE [Suspect]
     Active Substance: GADOPENTETATE DIMEGLUMINE
     Indication: Magnetic resonance imaging
     Dates: start: 20250623, end: 20250623

REACTIONS (1)
  - Contusion [None]
